FAERS Safety Report 9913879 (Version 1)
Quarter: 2014Q1

REPORT INFORMATION
  Report Type: Spontaneous
  Country: US (occurrence: US)
  Receive Date: 20140220
  Receipt Date: 20140220
  Transmission Date: 20141002
  Serious: Yes (Disabling)
  Sender: FDA-Public Use
  Company Number: US-SA-2014SA020332

PATIENT
  Age: 74 Year
  Sex: Female

DRUGS (19)
  1. AUBAGIO [Suspect]
     Indication: PRODUCT USED FOR UNKNOWN INDICATION
     Dosage: DOSE: 1 Q DAY
     Route: 048
  2. AMANTADINE [Concomitant]
  3. AMLODIPINE [Concomitant]
  4. BACLOFEN [Concomitant]
  5. CLONAZEPAM [Concomitant]
  6. FLUOXETINE [Concomitant]
  7. FUROSEMIDE [Concomitant]
  8. GABAPENTIN [Concomitant]
  9. LEVOTHYROXINE [Concomitant]
  10. SIMVASTATIN [Concomitant]
  11. TROSPIUM [Concomitant]
  12. FLUTICASONE [Concomitant]
  13. CLINDAMYCIN [Concomitant]
  14. VITAMIN D3 [Concomitant]
  15. CALCIUM [Concomitant]
  16. FOLIC ACID [Concomitant]
  17. MSM [Concomitant]
  18. METAMUCIL [Concomitant]
  19. COENZYME Q10 [Concomitant]

REACTIONS (4)
  - Impaired driving ability [Unknown]
  - Activities of daily living impaired [Unknown]
  - Androgenetic alopecia [Unknown]
  - Multiple sclerosis relapse [Unknown]
